FAERS Safety Report 21979624 (Version 13)
Quarter: 2023Q2

REPORT INFORMATION
  Report Type: Report from Study
  Country: FI (occurrence: None)
  Receive Date: 20230210
  Receipt Date: 20230620
  Transmission Date: 20230721
  Serious: Yes (Life-Threatening, Hospitalization)
  Sender: FDA-Public Use
  Company Number: FI-Eisai Medical Research-EC-2023-133806

PATIENT
  Age: 62 Year
  Sex: Female
  Weight: 62.9 kg

DRUGS (18)
  1. LENVATINIB [Suspect]
     Active Substance: LENVATINIB
     Indication: Clear cell renal cell carcinoma
     Route: 048
     Dates: start: 20220602, end: 20220615
  2. LENVATINIB [Suspect]
     Active Substance: LENVATINIB
     Dosage: DOSE REDUCED
     Route: 048
     Dates: start: 20220708, end: 20220824
  3. LENVATINIB [Suspect]
     Active Substance: LENVATINIB
     Dosage: DOSE REDUCED
     Route: 048
     Dates: start: 20220830, end: 20220914
  4. LENVATINIB [Suspect]
     Active Substance: LENVATINIB
     Dosage: FLUCTUATED DOSAGE, DOSE REDUCED
     Route: 048
     Dates: start: 20220920, end: 20230203
  5. PEMBROLIZUMAB [Suspect]
     Active Substance: PEMBROLIZUMAB
     Indication: Clear cell renal cell carcinoma
     Route: 041
     Dates: start: 20220602, end: 20220602
  6. PEMBROLIZUMAB [Suspect]
     Active Substance: PEMBROLIZUMAB
     Route: 041
     Dates: start: 20220714, end: 20220714
  7. BELZUTIFAN [Suspect]
     Active Substance: BELZUTIFAN
     Indication: Clear cell renal cell carcinoma
     Route: 048
     Dates: start: 20220602, end: 20220615
  8. BELZUTIFAN [Suspect]
     Active Substance: BELZUTIFAN
     Route: 048
     Dates: start: 20220622, end: 20220824
  9. BELZUTIFAN [Suspect]
     Active Substance: BELZUTIFAN
     Dosage: DOSE REDUCED
     Route: 048
     Dates: start: 20220830, end: 20220914
  10. BELZUTIFAN [Suspect]
     Active Substance: BELZUTIFAN
     Dosage: DOSE REDUCED
     Route: 048
     Dates: start: 20220920, end: 20230203
  11. ENALAPRIL [Concomitant]
     Active Substance: ENALAPRIL
     Dates: start: 20220511, end: 20220614
  12. PREDNISOLONE [Concomitant]
     Active Substance: PREDNISOLONE
     Dates: start: 20220614, end: 20220621
  13. EBASTINE [Concomitant]
     Active Substance: EBASTINE
     Dates: start: 20220614, end: 20220622
  14. PANTOPRAZOLE SODIUM [Concomitant]
     Active Substance: PANTOPRAZOLE SODIUM
     Dates: start: 20220614
  15. ACETAMINOPHEN [Concomitant]
     Active Substance: ACETAMINOPHEN
     Dates: start: 20220616, end: 20220622
  16. IBUPROFEN [Concomitant]
     Active Substance: IBUPROFEN
     Dates: start: 20220616, end: 20220622
  17. OXYCODONE HYDROCHLORIDE [Concomitant]
     Active Substance: OXYCODONE HYDROCHLORIDE
     Dates: start: 20220616, end: 20220617
  18. ENOXAPARIN SODIUM [Concomitant]
     Active Substance: ENOXAPARIN SODIUM
     Route: 058
     Dates: start: 20220616, end: 20220730

REACTIONS (2)
  - Cardiac failure [Recovered/Resolved]
  - Alanine aminotransferase increased [Recovered/Resolved]

NARRATIVE: CASE EVENT DATE: 20220621
